FAERS Safety Report 5341235-3 (Version None)
Quarter: 2007Q2

REPORT INFORMATION
  Report Type: 
  Country: None (occurrence: None)
  Receive Date: 20070405
  Receipt Date: 20070111
  Transmission Date: 20071010
  Serious: No
  Sender: FDA-Public Use
  Company Number: US200701002538

PATIENT
  Age: 80 Year
  Sex: Female

DRUGS (1)
  1. CYMBALTA [Suspect]
     Indication: DEPRESSION
     Dosage: 20 MG, DAILY (1/D), ORAL
     Route: 048
     Dates: start: 20061201

REACTIONS (2)
  - AGGRESSION [None]
  - AGITATION [None]
